FAERS Safety Report 6286900-9 (Version None)
Quarter: 2009Q3

REPORT INFORMATION
  Report Type: 
  Country: None (occurrence: None)
  Receive Date: 20090728
  Receipt Date: 20090409
  Transmission Date: 20100115
  Serious: Yes (Other)
  Sender: FDA-Public Use
  Company Number: US-BAYER-200920275NA

PATIENT
  Age: 59 Year
  Sex: Male

DRUGS (24)
  1. MAGNEVIST [Suspect]
     Indication: NUCLEAR MAGNETIC RESONANCE IMAGING
     Dosage: TOTAL DAILY DOSE: 15 ML
     Route: 042
     Dates: start: 20050713, end: 20050713
  2. UNSPECIFIED GADOLINIUM BASED CONTRAST AGENT [Suspect]
     Indication: NUCLEAR MAGNETIC RESONANCE IMAGING BRAIN
     Dates: start: 20050708, end: 20050708
  3. UNSPECIFIED GADOLINIUM BASED CONTRAST AGENT [Suspect]
     Dates: start: 20040924, end: 20040924
  4. TOPROL-XL [Concomitant]
     Dosage: TOTAL DAILY DOSE: 200 MG
     Route: 048
  5. ROCALTROL [Concomitant]
     Dosage: TOTAL DAILY DOSE: 0.50 ?G
     Route: 048
  6. RENAX [Concomitant]
     Dosage: TOTAL DAILY DOSE: 2.5 MG
     Route: 048
  7. RENAGEL [Concomitant]
     Dosage: TOTAL DAILY DOSE: 3600 MG
     Route: 048
  8. QUININE [Concomitant]
     Dosage: TOTAL DAILY DOSE: 260 MG
     Route: 048
  9. PROZAC [Concomitant]
     Dosage: TOTAL DAILY DOSE: 20 MG
     Route: 048
  10. PLAVIX [Concomitant]
     Dosage: TOTAL DAILY DOSE: 75 MG
     Route: 048
  11. ENALAPRIL MALEATE [Concomitant]
     Dosage: TOTAL DAILY DOSE: 5.0 MG
     Route: 048
  12. CALCIUM CARBONATE [Concomitant]
     Dosage: TOTAL DAILY DOSE: 2500 MG
     Route: 048
  13. PHOSLO [Concomitant]
  14. ARANESP [Concomitant]
  15. SENSIPAR [Concomitant]
  16. FOSRENOL [Concomitant]
     Dosage: TOTAL DAILY DOSE: 2000 MG  UNIT DOSE: 500 MG
  17. METOPROLOL SUCCINATE [Concomitant]
  18. LEXAPRO [Concomitant]
  19. GABAPENTIN [Concomitant]
  20. ERGOCALCIFEROL [Concomitant]
  21. HEPARIN [Concomitant]
     Dosage: 5000 UNITS SQ Q12HRS
  22. DIGOXIN [Concomitant]
  23. COMBIVENT [Concomitant]
  24. XENADERM [Concomitant]

REACTIONS (13)
  - GAIT DISTURBANCE [None]
  - JOINT RANGE OF MOTION DECREASED [None]
  - MOTOR DYSFUNCTION [None]
  - MUSCLE CONTRACTURE [None]
  - MUSCULAR WEAKNESS [None]
  - NEPHROGENIC SYSTEMIC FIBROSIS [None]
  - OEDEMA PERIPHERAL [None]
  - PARALYSIS [None]
  - PIGMENTATION DISORDER [None]
  - SKIN EXFOLIATION [None]
  - SKIN HYPERTROPHY [None]
  - SKIN INDURATION [None]
  - SKIN LESION [None]
